FAERS Safety Report 17055812 (Version 1)
Quarter: 2019Q4

REPORT INFORMATION
  Report Type: Spontaneous
  Country: CA (occurrence: CA)
  Receive Date: 20191120
  Receipt Date: 20191120
  Transmission Date: 20200122
  Serious: Yes (Hospitalization, Other)
  Sender: FDA-Public Use
  Company Number: CA-AUROBINDO-AUR-APL-2019-073900

PATIENT
  Sex: Female
  Weight: 69 kg

DRUGS (1)
  1. TADALAFIL. [Suspect]
     Active Substance: TADALAFIL
     Indication: PULMONARY ARTERIAL HYPERTENSION
     Dosage: 40 MILLIGRAM
     Route: 065

REACTIONS (3)
  - Pulmonary oedema [Recovering/Resolving]
  - Fatigue [Recovering/Resolving]
  - Dyspnoea [Recovering/Resolving]
